FAERS Safety Report 9383234 (Version 2)
Quarter: 2014Q2

REPORT INFORMATION
  Report Type: Spontaneous
  Country: US (occurrence: US)
  Receive Date: 20130704
  Receipt Date: 20140414
  Transmission Date: 20141212
  Serious: Yes (Hospitalization, Other)
  Sender: FDA-Public Use
  Company Number: US-BIOGENIDEC-2013BI059391

PATIENT
  Age: 54 Year
  Sex: Female

DRUGS (1)
  1. AVONEX [Suspect]
     Indication: MULTIPLE SCLEROSIS
     Route: 030
     Dates: start: 20060730

REACTIONS (11)
  - Renal failure acute [Recovered/Resolved]
  - Renal failure [Recovered/Resolved]
  - Renal failure chronic [Recovered/Resolved with Sequelae]
  - Bronchitis [Recovered/Resolved]
  - Infection [Recovered/Resolved]
  - Decreased immune responsiveness [Not Recovered/Not Resolved]
  - Neurogenic bladder [Recovered/Resolved]
  - Diplopia [Recovered/Resolved]
  - Hypophagia [Recovered/Resolved]
  - White blood cell count decreased [Not Recovered/Not Resolved]
  - Fatigue [Recovered/Resolved]
